FAERS Safety Report 22107785 (Version 1)
Quarter: 2023Q1

REPORT INFORMATION
  Report Type: Spontaneous
  Country: FR (occurrence: FR)
  Receive Date: 20230317
  Receipt Date: 20230317
  Transmission Date: 20230417
  Serious: Yes (Other)
  Sender: FDA-Public Use
  Company Number: FR-ALKEM LABORATORIES LIMITED-FR-ALKEM-2022-13884

PATIENT
  Age: 24 Month
  Sex: Female

DRUGS (4)
  1. EVEROLIMUS [Suspect]
     Active Substance: EVEROLIMUS
     Indication: Hyperinsulinism
     Dosage: 7.7 MILLIGRAM/SQ. METER, QD
     Route: 065
  2. DIAZOXIDE [Concomitant]
     Active Substance: DIAZOXIDE
     Indication: Hyperinsulinism
     Dosage: 8 MILLIGRAM/KILOGRAM, QD
  3. OCTREOTIDE [Concomitant]
     Active Substance: OCTREOTIDE
     Indication: Hyperinsulinism
     Dosage: 50 MICROGRAM/KILOGRAM, QD
  4. DEXTROSE [Concomitant]
     Active Substance: DEXTROSE
     Indication: Hyperinsulinism
     Dosage: 8.4 MILLIGRAM/KILOGRAM PER MINUTE
     Route: 065

REACTIONS (4)
  - Thrombocytopenia [Unknown]
  - Blood triglycerides increased [Unknown]
  - Varicella zoster virus infection [Unknown]
  - Drug ineffective for unapproved indication [Unknown]
